FAERS Safety Report 14480475 (Version 1)
Quarter: 2018Q1

REPORT INFORMATION
  Report Type: Spontaneous
  Country: US (occurrence: US)
  Receive Date: 20180201
  Receipt Date: 20180201
  Transmission Date: 20180509
  Serious: Yes (Hospitalization)
  Sender: FDA-Public Use
  Company Number: None

PATIENT
  Sex: Female

DRUGS (23)
  1. SMZ/TMP [Concomitant]
     Active Substance: SULFAMETHOXAZOLE\TRIMETHOPRIM
  2. MULTI COMPLT [Concomitant]
  3. TACROLIMUS 0.5MG [Suspect]
     Active Substance: TACROLIMUS
     Indication: LUNG TRANSPLANT
     Route: 048
     Dates: start: 20150415
  4. CYCLOBENZAPR [Concomitant]
     Active Substance: CYCLOBENZAPRINE
  5. CLONAZEPAM. [Concomitant]
     Active Substance: CLONAZEPAM
  6. CALCUM [Concomitant]
  7. METOPROLOL TARTRATE. [Concomitant]
     Active Substance: METOPROLOL TARTRATE
  8. PANTOPRAZOLE [Concomitant]
     Active Substance: PANTOPRAZOLE
  9. OXYCODONE [Concomitant]
     Active Substance: OXYCODONE
  10. BENZONATATE. [Concomitant]
     Active Substance: BENZONATATE
  11. VALACYCLOVIR [Concomitant]
     Active Substance: VALACYCLOVIR HYDROCHLORIDE
  12. OXYCONTIN [Concomitant]
     Active Substance: OXYCODONE HYDROCHLORIDE
  13. HALOPERIDOL. [Concomitant]
     Active Substance: HALOPERIDOL
  14. VITAMIN D [Concomitant]
     Active Substance: CHOLECALCIFEROL
  15. PREDNISONE. [Concomitant]
     Active Substance: PREDNISONE
  16. SENEXON [Concomitant]
     Active Substance: SENNOSIDES A AND B
  17. MUCINEX [Concomitant]
     Active Substance: GUAIFENESIN
  18. AZITHROMYCIN ANHYDROUS. [Concomitant]
     Active Substance: AZITHROMYCIN ANHYDROUS
  19. PIPER/TAZOBA [Concomitant]
  20. CELLCEPT [Concomitant]
     Active Substance: MYCOPHENOLATE MOFETIL\MYCOPHENOLATE MOFETIL HYDROCHLORIDE
  21. AZATHIOPRINE. [Concomitant]
     Active Substance: AZATHIOPRINE
  22. FISH OIL [Concomitant]
     Active Substance: FISH OIL
  23. VITAMIN B [Concomitant]
     Active Substance: VITAMIN B

REACTIONS (1)
  - Fall [None]
